FAERS Safety Report 11391868 (Version 2)
Quarter: 2015Q4

REPORT INFORMATION
  Report Type: Report from Study
  Country: BR (occurrence: BR)
  Receive Date: 20150818
  Receipt Date: 20151014
  Transmission Date: 20160304
  Serious: Yes (Other)
  Sender: FDA-Public Use
  Company Number: BR-BAYER-2015-028136

PATIENT
  Age: 57 Year
  Sex: Male
  Weight: 82 kg

DRUGS (1)
  1. NEXAVAR [Suspect]
     Active Substance: SORAFENIB
     Indication: HEPATIC CANCER
     Dosage: 400 MG, BID
     Route: 048
     Dates: start: 20150113, end: 201506

REACTIONS (18)
  - Hyperkeratosis [Not Recovered/Not Resolved]
  - Blindness [Recovered/Resolved]
  - Eye infection [Recovered/Resolved]
  - Eye pain [Recovered/Resolved]
  - Inflammation [Not Recovered/Not Resolved]
  - Headache [Recovered/Resolved]
  - Mass [Recovered/Resolved]
  - Palmoplantar keratoderma [Not Recovered/Not Resolved]
  - Feeling abnormal [Recovered/Resolved]
  - Hepatic cancer [None]
  - Pain in extremity [Not Recovered/Not Resolved]
  - Nausea [Recovered/Resolved]
  - Malaise [Recovered/Resolved]
  - Alopecia [Recovered/Resolved]
  - Drug ineffective [None]
  - Decreased appetite [Recovered/Resolved]
  - Abnormal loss of weight [Recovered/Resolved]
  - Diarrhoea [Recovered/Resolved]

NARRATIVE: CASE EVENT DATE: 201501
